FAERS Safety Report 5832116-7 (Version None)
Quarter: 2008Q3

REPORT INFORMATION
  Report Type: 
  Country: None (occurrence: None)
  Receive Date: 20080804
  Receipt Date: 20080731
  Transmission Date: 20090109
  Serious: Yes (Other)
  Sender: FDA-Public Use
  Company Number: FR-RB-002855-08

PATIENT
  Sex: Female

DRUGS (1)
  1. SUBUTEX [Suspect]
     Indication: DRUG USE FOR UNKNOWN INDICATION
     Route: 060

REACTIONS (2)
  - ANXIETY [None]
  - SUICIDAL IDEATION [None]
